FAERS Safety Report 25480196 (Version 1)
Quarter: 2025Q2

REPORT INFORMATION
  Report Type: Spontaneous
  Country: US (occurrence: US)
  Receive Date: 20250625
  Receipt Date: 20250625
  Transmission Date: 20250717
  Serious: No
  Sender: CALLIDITAS THERAPEUTICS AB
  Company Number: US-Calliditas-2025CAL01344

PATIENT
  Age: 59 Year
  Sex: Male

DRUGS (10)
  1. TARPEYO [Suspect]
     Active Substance: BUDESONIDE
     Indication: IgA nephropathy
     Route: 048
     Dates: start: 20250402
  2. CELLCEPT [Concomitant]
     Active Substance: MYCOPHENOLATE MOFETIL
  3. EPOGEN [Concomitant]
     Active Substance: ERYTHROPOIETIN
  4. FISH OIL [Concomitant]
     Active Substance: FISH OIL
  5. LIPITOR [Concomitant]
     Active Substance: ATORVASTATIN CALCIUM
  6. LOSARTAN [Concomitant]
     Active Substance: LOSARTAN
  7. MAGNESIUM OXIDE [Concomitant]
     Active Substance: MAGNESIUM OXIDE
  8. VITAMINS NOS [Concomitant]
     Active Substance: VITAMINS
  9. NORVASC [Concomitant]
     Active Substance: AMLODIPINE BESYLATE
  10. VALCYTE [Concomitant]
     Active Substance: VALGANCICLOVIR HYDROCHLORIDE

REACTIONS (5)
  - Stress [Unknown]
  - Peripheral swelling [Unknown]
  - Muscle spasms [Unknown]
  - Poor quality sleep [Unknown]
  - Abdominal distension [Unknown]
